FAERS Safety Report 23956042 (Version 11)
Quarter: 2024Q4

REPORT INFORMATION
  Report Type: Report from Study
  Country: CO (occurrence: CO)
  Receive Date: 20240610
  Receipt Date: 20241231
  Transmission Date: 20250114
  Serious: Yes (Hospitalization, Other)
  Sender: ROCHE
  Company Number: CO-002147023-NVSC2024CO107502

PATIENT
  Age: 12 Year
  Sex: Male
  Weight: 41.0 kg

DRUGS (26)
  1. XOLAIR [Suspect]
     Active Substance: OMALIZUMAB
     Indication: Asthma
     Dosage: 300 MG, QMO
     Route: 058
     Dates: start: 20170101, end: 2019
  2. XOLAIR [Suspect]
     Active Substance: OMALIZUMAB
     Dosage: UNK (LAST DOSE IN NOV)
     Route: 058
  3. XOLAIR [Suspect]
     Active Substance: OMALIZUMAB
     Dosage: 450 MG, QMO
     Route: 058
     Dates: start: 20240523
  4. XOLAIR [Suspect]
     Active Substance: OMALIZUMAB
     Route: 065
  5. XOLAIR [Suspect]
     Active Substance: OMALIZUMAB
     Dosage: 450 MG, QMO (APR)
     Route: 058
  6. XOLAIR [Suspect]
     Active Substance: OMALIZUMAB
     Dosage: 450 MG, QMO (APR)
     Route: 058
     Dates: start: 202405
  7. XOLAIR [Suspect]
     Active Substance: OMALIZUMAB
     Dosage: 450 MG, QMO (APR)
     Route: 058
     Dates: start: 20240802
  8. XOLAIR [Suspect]
     Active Substance: OMALIZUMAB
     Dosage: 450 MG, QMO
     Route: 058
     Dates: start: 20240622
  9. XOLAIR [Suspect]
     Active Substance: OMALIZUMAB
     Dosage: 450 MG, QMO
     Route: 058
     Dates: start: 20240702
  10. XOLAIR [Suspect]
     Active Substance: OMALIZUMAB
     Route: 058
     Dates: start: 202409
  11. XOLAIR [Suspect]
     Active Substance: OMALIZUMAB
     Route: 058
  12. XOLAIR [Suspect]
     Active Substance: OMALIZUMAB
     Route: 058
     Dates: start: 20240809
  13. XOLAIR [Suspect]
     Active Substance: OMALIZUMAB
     Route: 058
     Dates: start: 20241004
  14. ALBUTEROL [Concomitant]
     Active Substance: ALBUTEROL
     Indication: Product used for unknown indication
     Dosage: UNK
     Route: 065
  15. ALBUTEROL [Concomitant]
     Active Substance: ALBUTEROL
     Dosage: UNK
  16. IPRATROPIUM BROMIDE [Concomitant]
     Active Substance: IPRATROPIUM BROMIDE
     Indication: Product used for unknown indication
     Dosage: UNK
     Route: 065
  17. IPRATROPIUM BROMIDE [Concomitant]
     Active Substance: IPRATROPIUM BROMIDE
     Dosage: UNK
  18. MONTELUKAST [Concomitant]
     Active Substance: MONTELUKAST SODIUM
     Indication: Product used for unknown indication
     Dosage: 10 MG, QHS (AT NIGHT)
     Route: 065
  19. MONTELUKAST [Concomitant]
     Active Substance: MONTELUKAST SODIUM
     Dosage: UNK
  20. FLUTICASONE [Concomitant]
     Active Substance: FLUTICASONE
     Indication: Product used for unknown indication
     Dosage: 2 DOSAGE FORM (PUFFS) BID (MORNING AND NIGHT)
     Route: 065
  21. FLUTICASONE [Concomitant]
     Active Substance: FLUTICASONE
     Dosage: UNK
  22. PREDNISOLONE [Concomitant]
     Active Substance: PREDNISOLONE
     Indication: Product used for unknown indication
     Dosage: UNK
  23. FEXOFENADINE [Concomitant]
     Active Substance: FEXOFENADINE HYDROCHLORIDE
     Indication: Product used for unknown indication
     Dosage: 1 OF 120 MG, (IN THE MORNING AND ONE AT NIGHT)
     Route: 065
  24. FEXOFENADINE [Concomitant]
     Active Substance: FEXOFENADINE HYDROCHLORIDE
     Dosage: 1 OF 120 MG, (IN THE MORNING AND ONE AT NIGHT)
     Route: 065
  25. NAPROXEN [Concomitant]
     Active Substance: NAPROXEN
  26. BUDESONIDE [Concomitant]
     Active Substance: BUDESONIDE
     Indication: Product used for unknown indication
     Dosage: UNK (4.5/ 160)
     Route: 065

REACTIONS (59)
  - Pneumonia [Unknown]
  - Oxygen saturation decreased [Recovered/Resolved]
  - Pneumonia viral [Recovered/Resolved]
  - Asthmatic crisis [Recovered/Resolved]
  - Pyrexia [Recovered/Resolved]
  - Somnolence [Recovering/Resolving]
  - Underweight [Unknown]
  - Pain [Recovered/Resolved]
  - Pain [Unknown]
  - Nipple swelling [Not Recovered/Not Resolved]
  - Nipple pain [Not Recovered/Not Resolved]
  - Hormone level abnormal [Not Recovered/Not Resolved]
  - Nipple inflammation [Recovered/Resolved]
  - Feeling abnormal [Unknown]
  - Influenza [Unknown]
  - Infection [Recovered/Resolved]
  - Pallor [Unknown]
  - Hyperhidrosis [Unknown]
  - Injection site pain [Unknown]
  - Stenosis [Unknown]
  - Dermatitis [Unknown]
  - Pruritus [Unknown]
  - Nausea [Recovered/Resolved]
  - Chills [Unknown]
  - Inflammation [Recovered/Resolved]
  - Blister [Recovered/Resolved]
  - Dry skin [Unknown]
  - Secretion discharge [Unknown]
  - Laryngitis [Unknown]
  - Breast inflammation [Not Recovered/Not Resolved]
  - Feeling hot [Unknown]
  - Dizziness [Unknown]
  - Ataxia [Unknown]
  - Tonsillitis [Unknown]
  - Decreased immune responsiveness [Unknown]
  - Crying [Unknown]
  - Nervous system disorder [Unknown]
  - Vomiting [Recovered/Resolved]
  - Headache [Recovered/Resolved]
  - Depressed mood [Recovering/Resolving]
  - Off label use [Unknown]
  - Malaise [Recovered/Resolved]
  - COVID-19 [Recovered/Resolved]
  - Syncope [Unknown]
  - Ear infection [Unknown]
  - Pharyngitis [Unknown]
  - Dyspnoea [Unknown]
  - Cerebellar artery occlusion [Unknown]
  - Application site pain [Unknown]
  - Fatigue [Unknown]
  - Synovial cyst [Recovered/Resolved]
  - Inflammatory pain [Not Recovered/Not Resolved]
  - Hypoaesthesia [Unknown]
  - Rhinitis [Unknown]
  - Ill-defined disorder [Unknown]
  - Erythema [Unknown]
  - Gynaecomastia [Unknown]
  - Weight decreased [Unknown]
  - Inflammation [Unknown]

NARRATIVE: CASE EVENT DATE: 20180101
